FAERS Safety Report 6882657-9 (Version None)
Quarter: 2010Q3

REPORT INFORMATION
  Report Type: 
  Country: None (occurrence: None)
  Receive Date: 20100729
  Receipt Date: 20100720
  Transmission Date: 20110219
  Serious: Yes (Other)
  Sender: FDA-Public Use
  Company Number: US-WYE-H15554210

PATIENT
  Sex: Female
  Weight: 89.44 kg

DRUGS (2)
  1. PRISTIQ [Suspect]
     Indication: ANXIETY
     Dates: start: 20100501, end: 20100529
  2. VICODIN [Concomitant]
     Indication: PAIN
     Dosage: 5/500 QID AS NEEDED

REACTIONS (12)
  - AGITATION [None]
  - BRAIN INJURY [None]
  - CRYING [None]
  - DEPRESSION [None]
  - DRUG WITHDRAWAL SYNDROME [None]
  - FEELING ABNORMAL [None]
  - HEADACHE [None]
  - IRRITABILITY [None]
  - NIGHTMARE [None]
  - SCREAMING [None]
  - SUICIDAL IDEATION [None]
  - THINKING ABNORMAL [None]
